FAERS Safety Report 9700396 (Version 2)
Quarter: 2013Q4

REPORT INFORMATION
  Report Type: Report from Study
  Country: US (occurrence: US)
  Receive Date: 20131121
  Receipt Date: 20131226
  Transmission Date: 20140711
  Serious: Yes (Death, Hospitalization, Other)
  Sender: FDA-Public Use
  Company Number: US-PURDUE-USA-2013-0108604

PATIENT
  Age: 54 Year
  Sex: Female
  Weight: 71.66 kg

DRUGS (12)
  1. OXY CR TAB [Suspect]
     Indication: PAIN
     Dosage: 80 MG, EVERY 7 HOURS
     Route: 048
     Dates: start: 20131009
  2. OXY CR TAB [Suspect]
     Indication: PANCREATITIS
     Dosage: 20 MG, DAILY
     Route: 048
     Dates: start: 20131009
  3. OXY CR TAB [Suspect]
     Indication: NEUROPATHY PERIPHERAL
  4. METHADONE [Suspect]
     Indication: PRODUCT USED FOR UNKNOWN INDICATION
  5. METFORMIN [Concomitant]
     Indication: PRODUCT USED FOR UNKNOWN INDICATION
     Dosage: 1000 MG, BID
  6. HUMALOG [Concomitant]
     Indication: PRODUCT USED FOR UNKNOWN INDICATION
     Dosage: UNK, SEE TEXT
  7. LYRICA [Concomitant]
     Indication: PRODUCT USED FOR UNKNOWN INDICATION
     Dosage: 100 MG, TID
  8. PROZAC [Concomitant]
     Indication: PRODUCT USED FOR UNKNOWN INDICATION
     Dosage: 20 MG, QID
  9. ZYPREXA [Concomitant]
     Indication: PRODUCT USED FOR UNKNOWN INDICATION
     Dosage: 1 TABLET, BID
  10. LISINOPRIL [Concomitant]
     Indication: PRODUCT USED FOR UNKNOWN INDICATION
     Dosage: 20 MG, DAILY
  11. SYNTHROID [Concomitant]
     Indication: PRODUCT USED FOR UNKNOWN INDICATION
     Dosage: 250 MCG, DAILY
  12. APIDRA [Concomitant]
     Indication: PRODUCT USED FOR UNKNOWN INDICATION

REACTIONS (7)
  - Pneumonia aspiration [Fatal]
  - Cardio-respiratory distress [Unknown]
  - Diabetic ketoacidosis [Unknown]
  - Lactic acidosis [Unknown]
  - Acute respiratory failure [Unknown]
  - Hypoxic-ischaemic encephalopathy [Unknown]
  - Ischaemic hepatitis [Unknown]
